FAERS Safety Report 7068625-5 (Version None)
Quarter: 2010Q4

REPORT INFORMATION
  Report Type: 
  Country: None (occurrence: None)
  Receive Date: 20101020
  Receipt Date: 20101006
  Transmission Date: 20110411
  Serious: Yes (Death, Other)
  Sender: FDA-Public Use
  Company Number: GER/UKI/10/0015583

PATIENT
  Age: 41 Year
  Sex: Male

DRUGS (1)
  1. SERTRALINE HYDROCHLORIDE [Suspect]
     Indication: PRODUCT USED FOR UNKNOWN INDICATION

REACTIONS (6)
  - ABDOMINAL DISTENSION [None]
  - DRUG LEVEL INCREASED [None]
  - DRUG TOXICITY [None]
  - GASTROINTESTINAL HYPOMOTILITY [None]
  - INTESTINAL DILATATION [None]
  - PULMONARY OEDEMA [None]
